FAERS Safety Report 17453003 (Version 1)
Quarter: 2020Q1

REPORT INFORMATION
  Report Type: Spontaneous
  Country: DE (occurrence: DE)
  Receive Date: 20200224
  Receipt Date: 20200224
  Transmission Date: 20200409
  Serious: Yes (Life-Threatening, Hospitalization)
  Sender: FDA-Public Use
  Company Number: NVSC2020DE047103

PATIENT
  Age: 40 Year
  Sex: Female
  Weight: 55 kg

DRUGS (4)
  1. CODEINE [Concomitant]
     Active Substance: CODEINE
     Indication: PRODUCT USED FOR UNKNOWN INDICATION
     Dosage: 20 GTT, PRN
     Route: 048
  2. IBUPROFEN. [Suspect]
     Active Substance: IBUPROFEN
     Indication: PRODUCT USED FOR UNKNOWN INDICATION
     Dosage: 600 MG, BID (BEDARFSMEDIKATION BEI INFEKT, TABLETTEN )
     Route: 048
  3. WICK MEDINAIT (DEXTROMETHORPHAN HYDROBROMIDE\DOXYLAMINE SUCCINATE\EPHEDRINE SULFATE\PARACETAMOL) [Suspect]
     Active Substance: ACETAMINOPHEN\DEXTROMETHORPHAN HYDROBROMIDE\DOXYLAMINE\EPHEDRINE SULFATE
     Indication: PRODUCT USED FOR UNKNOWN INDICATION
     Dosage: NK NK, ZUR NACHT, BEDARFSMEDIKATION BEI INFEKT, SAFT
     Route: 048
  4. WICK DAYMED (ACETAMINOPHEN\ASCORBIC ACID\GUAIFENESIN\PHENYLEPHRINE) [Suspect]
     Active Substance: ACETAMINOPHEN\ASCORBIC ACID\GUAIFENESIN\PHENYLEPHRINE
     Indication: PRODUCT USED FOR UNKNOWN INDICATION
     Dosage: NK NK, 2X/D, BEDARFSMEDIKATION BEI INFEKT, SAFT
     Route: 048

REACTIONS (3)
  - Oedema peripheral [Unknown]
  - Product monitoring error [Unknown]
  - Jaundice [Unknown]
